FAERS Safety Report 21052325 (Version 2)
Quarter: 2022Q3

REPORT INFORMATION
  Report Type: Spontaneous
  Country: JP (occurrence: JP)
  Receive Date: 20220707
  Receipt Date: 20220829
  Transmission Date: 20221026
  Serious: Yes (Hospitalization)
  Sender: FDA-Public Use
  Company Number: JP-NOVARTISPH-NVSJ2022JP093407

PATIENT
  Age: 80 Year
  Sex: Male

DRUGS (2)
  1. JADENU [Suspect]
     Active Substance: DEFERASIROX
     Indication: Myelodysplastic syndrome
     Dosage: 270 MG
     Route: 048
     Dates: start: 20220419, end: 20220504
  2. AZACITIDINE [Concomitant]
     Active Substance: AZACITIDINE
     Indication: Product used for unknown indication
     Dosage: UNK
     Route: 065

REACTIONS (4)
  - Lip swelling [Recovered/Resolved]
  - Oral mucosa erosion [Recovered/Resolved]
  - Pyrexia [Recovered/Resolved]
  - Rash erythematous [Recovered/Resolved]

NARRATIVE: CASE EVENT DATE: 20220428
